FAERS Safety Report 16851112 (Version 1)
Quarter: 2019Q3

REPORT INFORMATION
  Report Type: Spontaneous
  Country: KR (occurrence: KR)
  Receive Date: 20190925
  Receipt Date: 20190925
  Transmission Date: 20191005
  Serious: Yes (Death, Other)
  Sender: FDA-Public Use
  Company Number: KR-PFIZER INC-2019407211

PATIENT
  Age: 86 Year
  Sex: Male

DRUGS (1)
  1. TYGACIL [Suspect]
     Active Substance: TIGECYCLINE
     Indication: INFLAMMATION
     Dosage: UNK

REACTIONS (3)
  - Drug ineffective [Unknown]
  - Shock [Fatal]
  - Acinetobacter bacteraemia [Unknown]
